FAERS Safety Report 15868960 (Version 2)
Quarter: 2019Q1

REPORT INFORMATION
  Report Type: Spontaneous
  Country: DE (occurrence: DE)
  Receive Date: 20190125
  Receipt Date: 20190222
  Transmission Date: 20190417
  Serious: Yes (Hospitalization)
  Sender: FDA-Public Use
  Company Number: DE-INCYTE CORPORATION-2019IN000389

PATIENT

DRUGS (2)
  1. PRADAXA [Concomitant]
     Active Substance: DABIGATRAN ETEXILATE MESYLATE
     Indication: THROMBOSIS
     Dosage: 220 MG, QD
     Route: 048
     Dates: start: 20161103, end: 20190109
  2. JAKAVI [Suspect]
     Active Substance: RUXOLITINIB
     Indication: MYELOPROLIFERATIVE NEOPLASM
     Dosage: 20 MG, BID
     Route: 065
     Dates: start: 20161028

REACTIONS (17)
  - Alanine aminotransferase increased [Unknown]
  - Alveolitis [Recovering/Resolving]
  - Lymphocyte count decreased [Unknown]
  - Antiphospholipid antibodies positive [Unknown]
  - Monocyte count increased [Unknown]
  - Platelet count decreased [Unknown]
  - Neutrophil count increased [Unknown]
  - Blood cholinesterase increased [Unknown]
  - Bronchitis [Unknown]
  - White blood cell count increased [Unknown]
  - Blood calcium increased [Unknown]
  - Epstein-Barr virus antibody positive [Unknown]
  - Gamma-glutamyltransferase increased [Unknown]
  - Haematocrit decreased [Unknown]
  - Blood lactate dehydrogenase increased [Unknown]
  - Blood bilirubin increased [Unknown]
  - Haemoglobin decreased [Unknown]

NARRATIVE: CASE EVENT DATE: 20190108
